FAERS Safety Report 4794918-8 (Version None)
Quarter: 2005Q3

REPORT INFORMATION
  Report Type: 
  Country: None (occurrence: None)
  Receive Date: 20050914
  Receipt Date: 20040830
  Transmission Date: 20060218
  Serious: Yes (Death, Hospitalization)
  Sender: FDA-Public Use
  Company Number: 163-20785-04080601

PATIENT
  Age: 51 Year
  Sex: Male
  Weight: 90.4926 kg

DRUGS (5)
  1. THALOMID [Suspect]
     Indication: BRAIN NEOPLASM
     Dosage: SEE IMAGE
     Route: 048
     Dates: start: 20040312, end: 20040912
  2. THALOMID [Suspect]
     Indication: BRAIN NEOPLASM
     Dosage: SEE IMAGE
     Route: 048
     Dates: start: 20040913, end: 20041104
  3. PROCARBAZINE (PROCARBAZINE) (UNKNOWN) [Suspect]
     Indication: BRAIN NEOPLASM
     Dosage: 250 MG/M2, X 5 DAYS EVERYSEE IMAGE SEE IMAGE
     Dates: start: 20040806, end: 20040810
  4. PROCARBAZINE (PROCARBAZINE) (UNKNOWN) [Suspect]
     Indication: BRAIN NEOPLASM
     Dosage: 250 MG/M2, X 5 DAYS EVERYSEE IMAGE SEE IMAGE
     Dates: start: 20040826, end: 20041012
  5. DECADRON [Concomitant]

REACTIONS (7)
  - DEATH [None]
  - DEHYDRATION [None]
  - DISEASE PROGRESSION [None]
  - NEUTROPENIA [None]
  - ORAL CANDIDIASIS [None]
  - PAIN [None]
  - PNEUMONIA [None]
